FAERS Safety Report 25961196 (Version 1)
Quarter: 2025Q4

REPORT INFORMATION
  Report Type: Spontaneous
  Country: US (occurrence: US)
  Receive Date: 20251027
  Receipt Date: 20251027
  Transmission Date: 20260117
  Serious: No
  Sender: NOVUGEN PHARMA SDN. BHD.
  Company Number: US-Novugen Pharma Sdn. Bhd.-2187338

PATIENT
  Sex: Male

DRUGS (2)
  1. MIDODRINE HYDROCHLORIDE [Suspect]
     Active Substance: MIDODRINE HYDROCHLORIDE
     Indication: Cardiac disorder
  2. SYNTHROID [Concomitant]
     Active Substance: LEVOTHYROXINE SODIUM

REACTIONS (2)
  - Abdominal pain upper [Unknown]
  - Inappropriate schedule of product administration [Unknown]
